FAERS Safety Report 7800521-5 (Version None)
Quarter: 2011Q4

REPORT INFORMATION
  Report Type: 
  Country: None (occurrence: None)
  Receive Date: 20111006
  Receipt Date: 20110926
  Transmission Date: 20120403
  Serious: Yes (Other)
  Sender: FDA-Public Use
  Company Number: US-CELGENEUS-163-21880-11093283

PATIENT
  Sex: Male
  Weight: 86.532 kg

DRUGS (14)
  1. ASPIRIN [Concomitant]
     Route: 065
  2. CALCIUM + VITAMIN D [Concomitant]
     Route: 065
  3. DEXAMETHASONE [Concomitant]
     Route: 065
  4. XALATAN [Concomitant]
     Route: 065
  5. GELATIN [Concomitant]
     Route: 065
  6. LIPITOR [Concomitant]
     Route: 065
  7. REVLIMID [Suspect]
     Indication: MULTIPLE MYELOMA
     Dosage: 25 MILLIGRAM
     Route: 048
     Dates: start: 20110501
  8. DIGOXIN [Concomitant]
     Route: 065
  9. ACIDOPHILUS [Concomitant]
     Route: 065
  10. TOPROL-XL [Concomitant]
     Route: 065
  11. HYZAAR [Concomitant]
     Route: 065
  12. TAMSULOSIN HCL [Concomitant]
     Route: 065
  13. CENTRUM SILVER [Concomitant]
     Route: 065
  14. TYLENOL-500 [Concomitant]
     Route: 065

REACTIONS (2)
  - BLOOD URINE PRESENT [None]
  - PROSTATIC DISORDER [None]
